FAERS Safety Report 9130743 (Version 5)
Quarter: 2013Q4

REPORT INFORMATION
  Report Type: Report from Study
  Country: DE (occurrence: DE)
  Receive Date: 20130301
  Receipt Date: 20131120
  Transmission Date: 20140711
  Serious: Yes (Other)
  Sender: FDA-Public Use
  Company Number: PHHO2013DE003175

PATIENT
  Sex: 0

DRUGS (7)
  1. BLINDED ACZ885 [Suspect]
     Indication: ARTERIOSCLEROSIS
     Dosage: CODE NOT BROKEN
     Route: 058
     Dates: start: 20120821, end: 20130122
  2. BLINDED PLACEBO [Suspect]
     Indication: ARTERIOSCLEROSIS
     Dosage: CODE NOT BROKEN
     Route: 058
     Dates: start: 20120821, end: 20130122
  3. NOVORAPID [Concomitant]
     Indication: TYPE 2 DIABETES MELLITUS
     Dosage: PRANDIAL (CARBOHYDRATE FACTOR OF 4)
     Route: 058
  4. PROTAPHANE [Concomitant]
     Indication: TYPE 2 DIABETES MELLITUS
     Dosage: 26 U, QD (0-0-26)
     Route: 058
  5. METFORMIN [Concomitant]
     Indication: TYPE 2 DIABETES MELLITUS
     Dosage: 1000 MG, QD (1-0-0)
     Route: 048
  6. MICARDIS [Concomitant]
     Indication: HYPERTENSION
     Dosage: 20 MG, QD (1-0-0)
     Route: 048
  7. ASS [Concomitant]
     Indication: CEREBROVASCULAR ACCIDENT
     Dosage: 100 MG, QD (1-0-0)
     Route: 048
     Dates: start: 201201

REACTIONS (1)
  - Malignant melanoma [Not Recovered/Not Resolved]
